FAERS Safety Report 25923326 (Version 2)
Quarter: 2025Q4

REPORT INFORMATION
  Report Type: Spontaneous
  Country: TR (occurrence: TR)
  Receive Date: 20251015
  Receipt Date: 20251015
  Transmission Date: 20260118
  Serious: Yes (Other)
  Sender: STRIDES
  Company Number: TR-STRIDES ARCOLAB LIMITED-2025SP012947

PATIENT
  Age: 52 Year
  Sex: Female

DRUGS (24)
  1. DOXORUBICIN [Suspect]
     Active Substance: DOXORUBICIN
     Indication: Neoplasm malignant
     Dosage: UNK
     Route: 065
  2. DOXORUBICIN [Suspect]
     Active Substance: DOXORUBICIN
     Indication: Follicular dendritic cell sarcoma
  3. DOXORUBICIN [Suspect]
     Active Substance: DOXORUBICIN
     Indication: Metastases to liver
  4. ETOPOSIDE [Suspect]
     Active Substance: ETOPOSIDE
     Indication: Follicular dendritic cell sarcoma
     Dosage: UNK
     Route: 065
  5. ETOPOSIDE [Suspect]
     Active Substance: ETOPOSIDE
     Indication: Neoplasm malignant
  6. ETOPOSIDE [Suspect]
     Active Substance: ETOPOSIDE
     Indication: Metastases to liver
  7. PREDNISOLONE [Suspect]
     Active Substance: PREDNISOLONE
     Indication: Follicular dendritic cell sarcoma
     Dosage: UNK
     Route: 065
  8. PREDNISOLONE [Suspect]
     Active Substance: PREDNISOLONE
     Indication: Neoplasm malignant
  9. PREDNISOLONE [Suspect]
     Active Substance: PREDNISOLONE
     Indication: Metastases to liver
  10. CYCLOPHOSPHAMIDE [Suspect]
     Active Substance: CYCLOPHOSPHAMIDE
     Indication: Follicular dendritic cell sarcoma
     Dosage: UNK
     Route: 065
  11. CYCLOPHOSPHAMIDE [Suspect]
     Active Substance: CYCLOPHOSPHAMIDE
     Indication: Metastases to liver
  12. CYCLOPHOSPHAMIDE [Suspect]
     Active Substance: CYCLOPHOSPHAMIDE
     Indication: Neoplasm malignant
  13. VINCRISTINE [Suspect]
     Active Substance: VINCRISTINE
     Indication: Follicular dendritic cell sarcoma
     Dosage: UNK
     Route: 065
  14. VINCRISTINE [Suspect]
     Active Substance: VINCRISTINE
     Indication: Metastases to liver
  15. VINCRISTINE [Suspect]
     Active Substance: VINCRISTINE
     Indication: Neoplasm malignant
  16. NIVOLUMAB [Suspect]
     Active Substance: NIVOLUMAB
     Indication: Follicular dendritic cell sarcoma
     Dosage: UNK
     Route: 065
  17. NIVOLUMAB [Suspect]
     Active Substance: NIVOLUMAB
     Indication: Metastases to liver
  18. NIVOLUMAB [Suspect]
     Active Substance: NIVOLUMAB
     Indication: Neoplasm malignant
  19. DOCETAXEL [Concomitant]
     Active Substance: DOCETAXEL
     Indication: Follicular dendritic cell sarcoma
     Dosage: ON DAY 8, EVERY 21 DAYS
     Route: 042
  20. DOCETAXEL [Concomitant]
     Active Substance: DOCETAXEL
     Indication: Metastases to liver
  21. DOCETAXEL [Concomitant]
     Active Substance: DOCETAXEL
     Indication: Neoplasm malignant
  22. GEMCITABINE [Concomitant]
     Active Substance: GEMCITABINE
     Indication: Follicular dendritic cell sarcoma
     Dosage: ON DAYS 1 AND 8
     Route: 042
  23. GEMCITABINE [Concomitant]
     Active Substance: GEMCITABINE
     Indication: Metastases to liver
  24. GEMCITABINE [Concomitant]
     Active Substance: GEMCITABINE
     Indication: Neoplasm malignant

REACTIONS (2)
  - Neoplasm progression [Unknown]
  - Off label use [Unknown]
